FAERS Safety Report 13932890 (Version 2)
Quarter: 2017Q4

REPORT INFORMATION
  Report Type: Spontaneous
  Country: US (occurrence: US)
  Receive Date: 20170904
  Receipt Date: 20171006
  Transmission Date: 20180320
  Serious: Yes (Death, Hospitalization, Other)
  Sender: FDA-Public Use
  Company Number: US-PFIZER INC-2017382239

PATIENT
  Age: 69 Year
  Sex: Male
  Weight: 102 kg

DRUGS (5)
  1. ZOLOFT [Concomitant]
     Active Substance: SERTRALINE HYDROCHLORIDE
     Indication: PSYCHOTHERAPY
     Dosage: 200 MG, 1X/DAY
     Route: 048
     Dates: start: 2002
  2. TRAMADOL. [Concomitant]
     Active Substance: TRAMADOL
     Indication: PAIN
     Dosage: UNK (10MG TABLET 1-2 TABLETS EVERY 4 HOURS)
     Dates: start: 2016
  3. LYRICA [Suspect]
     Active Substance: PREGABALIN
     Indication: SPINAL COLUMN STENOSIS
     Dosage: 450 MG, DAILY (150MG ONE CAPSULE IN THE MORNING AND TWO CAPSULES AT NIGHT)
     Route: 048
     Dates: start: 2013, end: 201707
  4. LYRICA [Suspect]
     Active Substance: PREGABALIN
     Indication: PAIN
  5. ZOCOR [Concomitant]
     Active Substance: SIMVASTATIN
     Indication: BLOOD CHOLESTEROL ABNORMAL
     Dosage: UNK
     Dates: start: 2002

REACTIONS (7)
  - Fracture [Unknown]
  - Weight decreased [Unknown]
  - Personality change [Unknown]
  - Anaphylactic shock [Unknown]
  - Pneumonia [Unknown]
  - Lung cancer metastatic [Fatal]
  - Loss of personal independence in daily activities [Unknown]

NARRATIVE: CASE EVENT DATE: 201603
